FAERS Safety Report 24253612 (Version 1)
Quarter: 2024Q3

REPORT INFORMATION
  Report Type: Spontaneous
  Country: US (occurrence: None)
  Receive Date: 20240826
  Receipt Date: 20240826
  Transmission Date: 20241016
  Serious: Yes (Other)
  Sender: Public
  Company Number: None

PATIENT
  Age: 64 Year
  Sex: Male
  Weight: 109.3 kg

DRUGS (1)
  1. LEQEMBI [Suspect]
     Active Substance: LECANEMAB-IRMB
     Indication: Dementia Alzheimer^s type
     Dosage: 1090 MG EVERY 14 DAYS INTRAVENOUS DRIP
     Route: 041
     Dates: start: 20240205, end: 20240722

REACTIONS (2)
  - Cognitive disorder [None]
  - Prodromal Alzheimer^s disease [None]

NARRATIVE: CASE EVENT DATE: 20240809
